FAERS Safety Report 23713986 (Version 1)
Quarter: 2024Q2

REPORT INFORMATION
  Report Type: Spontaneous
  Country: US (occurrence: None)
  Receive Date: 20240405
  Receipt Date: 20240405
  Transmission Date: 20240716
  Serious: Yes (Other)
  Sender: FDA-Public Use
  Company Number: 2024A076317

PATIENT
  Sex: Female

DRUGS (2)
  1. SYMBICORT [Suspect]
     Active Substance: BUDESONIDE\FORMOTEROL FUMARATE DIHYDRATE
     Dosage: UNKNOWN
     Route: 055
  2. LEVALBUTEROL [Concomitant]
     Active Substance: LEVALBUTEROL

REACTIONS (6)
  - Respiratory disorder [Unknown]
  - Respiratory arrest [Unknown]
  - COVID-19 [Unknown]
  - Dyspnoea [Unknown]
  - Tremor [Unknown]
  - Drug ineffective [Unknown]
